FAERS Safety Report 8287084-8 (Version None)
Quarter: 2012Q2

REPORT INFORMATION
  Report Type: 
  Country: None (occurrence: None)
  Receive Date: 20120416
  Receipt Date: 20120222
  Transmission Date: 20120825
  Serious: No
  Sender: FDA-Public Use
  Company Number: US-ALLERGAN-1202468US

PATIENT
  Age: 76 Year
  Sex: Male

DRUGS (4)
  1. REFRESH PLUS [Suspect]
     Indication: DRY EYE
     Dosage: UNK GTT, UNK
     Route: 047
     Dates: start: 20120220
  2. ERYTHROMYCIN NS [Concomitant]
     Indication: POSTOPERATIVE CARE
     Dosage: UNK
     Dates: start: 20120201
  3. ZYMAXID [Suspect]
     Indication: POSTOPERATIVE CARE
     Dosage: UNK
     Route: 047
     Dates: start: 20120201
  4. VALCON EYE DROPS [Concomitant]
     Indication: POSTOPERATIVE CARE
     Dosage: UNK
     Route: 047
     Dates: start: 20120201

REACTIONS (2)
  - VISUAL ACUITY REDUCED [None]
  - VISION BLURRED [None]
